FAERS Safety Report 8906253 (Version 2)
Quarter: 2013Q1

REPORT INFORMATION
  Report Type: Spontaneous
  Country: US (occurrence: None)
  Receive Date: 20121107
  Receipt Date: 20121121
  Transmission Date: 20140127
  Serious: Yes (Hospitalization)
  Sender: FDA-Public Use
  Company Number: JPI-P-024794

PATIENT
  Age: 43 Year
  Sex: Female
  Weight: 81.19 kg

DRUGS (22)
  1. SODIUM OXYBATE [Suspect]
     Indication: CATAPLEXY
     Dosage: (2.5 GM, 2 IN 1 D)
     Route: 048
     Dates: start: 20120813, end: 20120819
  2. SODIUM OXYBATE [Suspect]
     Indication: SOMNOLENCE
     Dosage: (2.5 GM, 2 IN 1 D)
     Route: 048
     Dates: start: 20120813, end: 20120819
  3. ARMODAFINIL [Suspect]
     Indication: NARCOLEPSY
     Dosage: (250 MG, 1 IN 1 D)
     Route: 048
     Dates: start: 201209
  4. ARMODAFINIL [Suspect]
     Indication: SOMNOLENCE
     Dosage: (250 MG, 1 IN 1 D)
     Route: 048
     Dates: start: 201209
  5. PROVIGIL [Suspect]
     Indication: NARCOLEPSY
     Dosage: (200 MG, 1 IN 1 D)
     Route: 048
  6. PROVIGIL [Suspect]
     Indication: SOMNOLENCE
     Dosage: (200 MG, 1 IN 1 D)
     Route: 048
  7. IBUPROFEN [Suspect]
     Indication: PAIN
  8. IBUPROFEN [Suspect]
  9. METHYLPHENIDATE [Concomitant]
  10. ASPIRIN (ACETYLSALICYLIC ACID) [Concomitant]
  11. MONTELUKAST SODIUM [Concomitant]
  12. FUROSEMIDE [Concomitant]
  13. POTASSIUM [Concomitant]
  14. VITAMIN D [Concomitant]
  15. FLUTICASONE PROPIONATE W/SALMETEROL [Concomitant]
  16. VENTOLIN (ALBUTEROL SULFATE) [Concomitant]
  17. PANTOPRAZOLE [Concomitant]
  18. COMPAZINE (PROCHLORPERAZINE MALEATE) [Concomitant]
  19. NASAL SPRAY [Concomitant]
  20. VITAMIN B [Concomitant]
  21. AMPHETAMINE, DEXTROAMPHETAMINE MIXED SALTS PSYCHOSTIMULANTS AND NOOTROPICS [Concomitant]
  22. CITALOPRAM [Concomitant]

REACTIONS (13)
  - Headache [None]
  - Fatigue [None]
  - Arthritis [None]
  - Drug ineffective [None]
  - Sleep talking [None]
  - Abdominal discomfort [None]
  - Nausea [None]
  - Rectal haemorrhage [None]
  - Abdominal pain upper [None]
  - Hiatus hernia [None]
  - Snoring [None]
  - Somnolence [None]
  - Hyperhidrosis [None]
